FAERS Safety Report 5519962-4 (Version None)
Quarter: 2007Q4

REPORT INFORMATION
  Report Type: 
  Country: None (occurrence: None)
  Receive Date: 20071116
  Receipt Date: 20070824
  Transmission Date: 20080405
  Serious: No
  Sender: FDA-Public Use
  Company Number: US-BRISTOL-MYERS SQUIBB COMPANY-13890207

PATIENT
  Age: 65 Year
  Sex: Female
  Weight: 77 kg

DRUGS (1)
  1. QUESTRAN LIGHT [Suspect]
     Indication: CROHN'S DISEASE
     Route: 048

REACTIONS (1)
  - DYSGEUSIA [None]
